FAERS Safety Report 15326196 (Version 1)
Quarter: 2018Q3

REPORT INFORMATION
  Report Type: Spontaneous
  Country: US (occurrence: US)
  Receive Date: 20180828
  Receipt Date: 20180828
  Transmission Date: 20181010
  Serious: Yes (Hospitalization, Other)
  Sender: FDA-Public Use
  Company Number: US-009507513-1808USA009871

PATIENT
  Sex: Male

DRUGS (6)
  1. METOPROLOL. [Suspect]
     Active Substance: METOPROLOL
     Indication: PRODUCT USED FOR UNKNOWN INDICATION
     Dosage: 50 MG, UNK
     Route: 065
  2. METOPROLOL. [Suspect]
     Active Substance: METOPROLOL
     Dosage: 25 MG, UNK
     Route: 065
  3. XTANDI [Suspect]
     Active Substance: ENZALUTAMIDE
     Dosage: 120 MILLIGRAM DAILY;
     Route: 048
  4. XTANDI [Suspect]
     Active Substance: ENZALUTAMIDE
     Indication: PROSTATE CANCER
     Dosage: 120 MILLIGRAM DAILY;
     Route: 048
     Dates: start: 20130115
  5. KEYTRUDA [Suspect]
     Active Substance: PEMBROLIZUMAB
     Dosage: UNK
     Route: 065
  6. XTANDI [Suspect]
     Active Substance: ENZALUTAMIDE
     Dosage: 160 MILLIGRAM DAILY;
     Route: 048
     Dates: start: 20140425

REACTIONS (23)
  - Nasal congestion [Not Recovered/Not Resolved]
  - Fatigue [Unknown]
  - Cardiac failure congestive [Unknown]
  - Fall [Unknown]
  - Rash [Unknown]
  - Underdose [Unknown]
  - Insomnia [Unknown]
  - Skin discolouration [Recovered/Resolved]
  - Eating disorder [Unknown]
  - Fall [Unknown]
  - Cough [Not Recovered/Not Resolved]
  - Upper-airway cough syndrome [Not Recovered/Not Resolved]
  - Fracture [Unknown]
  - Back pain [Unknown]
  - Prostatic specific antigen increased [Unknown]
  - Diarrhoea [Unknown]
  - Concussion [Unknown]
  - Dyspnoea [Unknown]
  - Adverse event [Unknown]
  - Neoplasm malignant [Unknown]
  - Prostatic specific antigen increased [Not Recovered/Not Resolved]
  - Fear of eating [Unknown]
  - Dysphonia [Recovering/Resolving]

NARRATIVE: CASE EVENT DATE: 201409
